FAERS Safety Report 8602955-8 (Version None)
Quarter: 2012Q3

REPORT INFORMATION
  Report Type: 
  Country: None (occurrence: None)
  Receive Date: 20120817
  Receipt Date: 20120807
  Transmission Date: 20120928
  Serious: Yes (Hospitalization)
  Sender: FDA-Public Use
  Company Number: FR-BRISTOL-MYERS SQUIBB COMPANY-16846479

PATIENT
  Age: 86 Year
  Sex: Male

DRUGS (2)
  1. CARBOPLATIN [Suspect]
     Dosage: D1, D8 AND D15
     Route: 042
     Dates: start: 20120213, end: 20120227
  2. TAXOL [Suspect]
     Route: 042
     Dates: start: 20120213

REACTIONS (2)
  - CEREBELLAR SYNDROME [None]
  - LEUKOENCEPHALOPATHY [None]
